FAERS Safety Report 14332795 (Version 4)
Quarter: 2018Q1

REPORT INFORMATION
  Report Type: Spontaneous
  Country: BE (occurrence: BE)
  Receive Date: 20171228
  Receipt Date: 20180309
  Transmission Date: 20180509
  Serious: Yes (Hospitalization, Other)
  Sender: FDA-Public Use
  Company Number: BE-ASTRAZENECA-2017SF30683

PATIENT
  Age: 67 Year
  Sex: Male
  Weight: 100 kg

DRUGS (18)
  1. TACROLIMUS. [Suspect]
     Active Substance: TACROLIMUS
     Indication: RENAL TRANSPLANT
     Route: 065
     Dates: start: 20151231, end: 20160221
  2. METHYLPREDNISOLONE. [Suspect]
     Active Substance: METHYLPREDNISOLONE
     Indication: RENAL TRANSPLANT
     Route: 065
     Dates: start: 20150519
  3. MEDROL [Suspect]
     Active Substance: METHYLPREDNISOLONE
     Indication: RENAL TRANSPLANT
     Route: 065
     Dates: start: 20150519
  4. TACROLIMUS. [Suspect]
     Active Substance: TACROLIMUS
     Indication: RENAL TRANSPLANT
     Route: 065
     Dates: start: 20150520, end: 20151117
  5. ZINNAT [Suspect]
     Active Substance: CEFUROXIME AXETIL
     Indication: INFECTION
     Route: 065
     Dates: start: 20160119, end: 20160120
  6. METHYLPREDNISOLONE. [Suspect]
     Active Substance: METHYLPREDNISOLONE
     Indication: RENAL TRANSPLANT
     Route: 065
  7. OMEPRAZOLE. [Suspect]
     Active Substance: OMEPRAZOLE
     Indication: PROPHYLAXIS
     Route: 065
     Dates: start: 20150530, end: 20160112
  8. CELLCEPT [Suspect]
     Active Substance: MYCOPHENOLATE MOFETIL\MYCOPHENOLATE MOFETIL HYDROCHLORIDE
     Indication: RENAL TRANSPLANT
     Route: 065
     Dates: start: 20150520, end: 20151117
  9. METHYLPREDNISOLONE. [Suspect]
     Active Substance: METHYLPREDNISOLONE
     Indication: RENAL TRANSPLANT
     Route: 065
  10. L-THYROXINE [Concomitant]
     Active Substance: LEVOTHYROXINE
     Indication: HYPOTHYROIDISM
     Route: 065
     Dates: start: 20090731
  11. INEGY [Suspect]
     Active Substance: EZETIMIBE\SIMVASTATIN
     Indication: HYPERCHOLESTEROLAEMIA
     Route: 065
     Dates: start: 20150602, end: 20160204
  12. PROGRAFT [Suspect]
     Active Substance: TACROLIMUS
     Indication: RENAL TRANSPLANT
     Route: 065
     Dates: start: 20150520, end: 20151117
  13. NEORAL [Concomitant]
     Active Substance: CYCLOSPORINE
     Indication: RENAL TRANSPLANT
     Route: 065
     Dates: start: 20160227
  14. OMEPRAZOLE. [Suspect]
     Active Substance: OMEPRAZOLE
     Indication: PROPHYLAXIS
     Route: 065
     Dates: start: 20150530, end: 20160112
  15. ENALAPRIL MALEATE. [Suspect]
     Active Substance: ENALAPRIL MALEATE
     Indication: HYPERTENSION
     Route: 065
     Dates: start: 20150818, end: 20160112
  16. SODIUM BICARBONATE. [Concomitant]
     Active Substance: SODIUM BICARBONATE
     Indication: ACIDOSIS
     Dates: start: 20150602
  17. NOVOMIX [Concomitant]
     Active Substance: INSULIN ASPART
     Indication: DIABETES MELLITUS
     Dosage: 36.0IU UNKNOWN
     Route: 065
     Dates: start: 20160101
  18. NOVOLIN [Concomitant]
     Active Substance: INSULIN HUMAN
     Indication: DIABETES MELLITUS
     Dosage: 30.0IU UNKNOWN
     Dates: start: 20060101

REACTIONS (5)
  - Bronchopneumopathy [Recovered/Resolved]
  - Necrosis [Recovered/Resolved]
  - Osteitis [Recovered/Resolved]
  - Lymphangitis [Not Recovered/Not Resolved]
  - Neutropenia [Not Recovered/Not Resolved]

NARRATIVE: CASE EVENT DATE: 20150921
